FAERS Safety Report 9151255 (Version 1)
Quarter: 2013Q1

REPORT INFORMATION
  Report Type: Spontaneous
  Country: US (occurrence: US)
  Receive Date: 20130308
  Receipt Date: 20130308
  Transmission Date: 20140127
  Serious: No
  Sender: FDA-Public Use
  Company Number: US-GLAXOSMITHKLINE-A0976151A

PATIENT
  Sex: Female

DRUGS (3)
  1. NICOTINE GUM [Suspect]
     Indication: SMOKING CESSATION THERAPY
     Route: 002
     Dates: start: 2005
  2. WELLBUTRIN [Suspect]
     Indication: SMOKING CESSATION THERAPY
  3. NICOTINE [Suspect]
     Indication: SMOKING CESSATION THERAPY
     Route: 062

REACTIONS (3)
  - Drug ineffective [Unknown]
  - Nicotine dependence [Unknown]
  - Agitation [Unknown]
